FAERS Safety Report 20183574 (Version 1)
Quarter: 2021Q4

REPORT INFORMATION
  Report Type: Spontaneous
  Country: US (occurrence: None)
  Receive Date: 20211214
  Receipt Date: 20211214
  Transmission Date: 20220303
  Serious: Yes (Hospitalization)
  Sender: FDA-Public Use
  Company Number: None

PATIENT
  Age: 54 Year
  Sex: Female
  Weight: 99.79 kg

DRUGS (2)
  1. BAMLANIVIMAB\ETESEVIMAB [Suspect]
     Active Substance: BAMLANIVIMAB\ETESEVIMAB
  2. Component Order Dose Admin Dose bamlanivimab 700 MG 20 mL 700 mg etese [Concomitant]
     Dates: start: 20211214, end: 20211214

REACTIONS (5)
  - Infusion related reaction [None]
  - Back pain [None]
  - Chest pain [None]
  - Dyspnoea [None]
  - Blood pressure diastolic increased [None]

NARRATIVE: CASE EVENT DATE: 20211214
